FAERS Safety Report 16089199 (Version 4)
Quarter: 2020Q4

REPORT INFORMATION
  Report Type: Spontaneous
  Country: CA (occurrence: CA)
  Receive Date: 20190319
  Receipt Date: 20201022
  Transmission Date: 20210113
  Serious: Yes (Other)
  Sender: FDA-Public Use
  Company Number: CA-SA-2019SA071375

PATIENT

DRUGS (2)
  1. DUPIXENT [Suspect]
     Active Substance: DUPILUMAB
     Indication: DERMATITIS ATOPIC
     Dosage: UNK
     Dates: start: 2019
  2. PREDNISONE. [Concomitant]
     Active Substance: PREDNISONE
     Dosage: UNK

REACTIONS (3)
  - Cutaneous T-cell lymphoma [Recovering/Resolving]
  - Lymphoproliferative disorder [Recovering/Resolving]
  - Eczema [Recovering/Resolving]

NARRATIVE: CASE EVENT DATE: 201912
